FAERS Safety Report 8184133-2 (Version None)
Quarter: 2012Q1

REPORT INFORMATION
  Report Type: 
  Country: None (occurrence: None)
  Receive Date: 20120305
  Receipt Date: 20120301
  Transmission Date: 20120608
  Serious: Yes (Death, Other)
  Sender: FDA-Public Use
  Company Number: US-PFIZER INC-2012042367

PATIENT
  Sex: Male
  Weight: 104 kg

DRUGS (1)
  1. ZOSYN [Suspect]
     Indication: ABDOMINAL PAIN
     Dosage: UNK
     Route: 042
     Dates: start: 20100407

REACTIONS (3)
  - ANAPHYLACTIC REACTION [None]
  - CRANIOCEREBRAL INJURY [None]
  - DEATH [None]
